FAERS Safety Report 10249483 (Version 2)
Quarter: 2015Q3

REPORT INFORMATION
  Report Type: Spontaneous
  Country: US (occurrence: US)
  Receive Date: 20140620
  Receipt Date: 20150717
  Transmission Date: 20151125
  Serious: Yes (Other)
  Sender: FDA-Public Use
  Company Number: US-SA-2014SA077920

PATIENT
  Age: 48 Year
  Sex: Male

DRUGS (3)
  1. PLAVIX [Suspect]
     Active Substance: CLOPIDOGREL BISULFATE
     Indication: STENT PLACEMENT
     Route: 048
     Dates: start: 20080308, end: 20090703
  2. PLAVIX [Suspect]
     Active Substance: CLOPIDOGREL BISULFATE
     Indication: ACUTE CORONARY SYNDROME
     Route: 048
     Dates: start: 20080308, end: 20090703
  3. ASPIRIN. [Concomitant]
     Active Substance: ASPIRIN
     Dates: start: 20080308, end: 20090703

REACTIONS (5)
  - Ulcer haemorrhage [Unknown]
  - Nephrolithiasis [Not Recovered/Not Resolved]
  - Renal haematoma [Unknown]
  - Multiple injuries [Unknown]
  - Cholelithiasis [Recovered/Resolved]

NARRATIVE: CASE EVENT DATE: 20090703
